FAERS Safety Report 7495214-0 (Version None)
Quarter: 2011Q2

REPORT INFORMATION
  Report Type: 
  Country: None (occurrence: None)
  Receive Date: 20110520
  Receipt Date: 20110518
  Transmission Date: 20111010
  Serious: Yes (Other)
  Sender: FDA-Public Use
  Company Number: US-AMGEN-USASP2011026079

PATIENT
  Sex: Male

DRUGS (2)
  1. MELPHALAN HYDROCHLORIDE [Concomitant]
     Dosage: 80 MG, QD
  2. NPLATE [Suspect]
     Indication: IDIOPATHIC THROMBOCYTOPENIC PURPURA

REACTIONS (1)
  - NON-SMALL CELL LUNG CANCER [None]
